FAERS Safety Report 4816629-2 (Version None)
Quarter: 2005Q4

REPORT INFORMATION
  Report Type: 
  Country: None (occurrence: None)
  Receive Date: 20051031
  Receipt Date: 20051031
  Transmission Date: 20060501
  Serious: Yes (Death, Hospitalization)
  Sender: FDA-Public Use
  Company Number: None

PATIENT
  Sex: Female
  Weight: 74.5 kg

DRUGS (3)
  1. DOCETAXEL [Suspect]
     Indication: BREAST CANCER
     Dosage: SEE IMAGE
     Route: 042
     Dates: start: 20051003, end: 20051003
  2. DOXORUBICIN [Suspect]
     Dosage: SEE IMAGE
     Route: 042
     Dates: start: 20051003, end: 20051003
  3. CYCLOPHOSPHAMIDE [Suspect]
     Dosage: SEE IMAGE
     Route: 042
     Dates: start: 20051003, end: 20051003

REACTIONS (5)
  - ABDOMINAL PAIN [None]
  - CIRCULATORY COLLAPSE [None]
  - GASTROINTESTINAL NECROSIS [None]
  - HEPATIC ISCHAEMIA [None]
  - HYPOTENSION [None]
